FAERS Safety Report 13658347 (Version 1)
Quarter: 2017Q2

REPORT INFORMATION
  Report Type: Spontaneous
  Country: ES (occurrence: ES)
  Receive Date: 20170616
  Receipt Date: 20170616
  Transmission Date: 20170830
  Serious: Yes (Hospitalization, Other)
  Sender: FDA-Public Use
  Company Number: ES-UCBSA-2017022881

PATIENT
  Age: 25 Year
  Sex: Female
  Weight: 40 kg

DRUGS (3)
  1. LEVETIRACETAM. [Suspect]
     Active Substance: LEVETIRACETAM
     Indication: SEIZURE
     Dosage: 500 MG, 2X/DAY (BID)
  2. LEVETIRACETAM. [Suspect]
     Active Substance: LEVETIRACETAM
     Dosage: 500 MG, ONCE DAILY (QD)
  3. LEVETIRACETAM. [Suspect]
     Active Substance: LEVETIRACETAM
     Dosage: 500 MG ONCE DAILY AND 250 MG DOSE AFTER HAEMODIALYSIS SESSIONS

REACTIONS (3)
  - Generalised tonic-clonic seizure [Recovered/Resolved]
  - Off label use [Unknown]
  - Pyrexia [Unknown]
